FAERS Safety Report 6220759-0 (Version None)
Quarter: 2009Q2

REPORT INFORMATION
  Report Type: 
  Country: None (occurrence: None)
  Receive Date: 20090610
  Receipt Date: 20080226
  Transmission Date: 20091009
  Serious: Yes (Other)
  Sender: FDA-Public Use
  Company Number: US-BAYER-200810844BCC

PATIENT
  Age: 38 Year
  Sex: Female
  Weight: 54 kg

DRUGS (2)
  1. MIDOL [Suspect]
     Indication: DYSMENORRHOEA
     Dosage: TOTAL DAILY DOSE: 2 DF  UNIT DOSE: 2 DF
     Route: 048
     Dates: start: 20080226
  2. BIRTH CONTROL [Concomitant]

REACTIONS (1)
  - SOMNOLENCE [None]
